FAERS Safety Report 19864900 (Version 1)
Quarter: 2021Q3

REPORT INFORMATION
  Report Type: Spontaneous
  Country: US (occurrence: US)
  Receive Date: 20210922
  Receipt Date: 20210922
  Transmission Date: 20211014
  Serious: Yes (Other)
  Sender: FDA-Public Use
  Company Number: US-CIPLA LTD.-2021US06324

PATIENT

DRUGS (1)
  1. LAMOTRIGINE. [Suspect]
     Active Substance: LAMOTRIGINE
     Dosage: 3.5 GRAM, UNK
     Route: 048

REACTIONS (5)
  - Intentional overdose [Unknown]
  - Cardiotoxicity [Recovered/Resolved]
  - Bundle branch block right [Recovered/Resolved]
  - Arrhythmia [Recovered/Resolved]
  - Defect conduction intraventricular [Recovered/Resolved]
